FAERS Safety Report 23130429 (Version 1)
Quarter: 2023Q4

REPORT INFORMATION
  Report Type: Spontaneous
  Country: US (occurrence: None)
  Receive Date: 20231030
  Receipt Date: 20231030
  Transmission Date: 20240110
  Serious: Yes (Hospitalization)
  Sender: FDA-Public Use
  Company Number: None

PATIENT
  Age: 51 Year
  Sex: Female

DRUGS (1)
  1. CYANOCOBALAMIN\SEMAGLUTIDE [Suspect]
     Active Substance: CYANOCOBALAMIN\SEMAGLUTIDE
     Dosage: FREQUENCY : WEEKLY;?
     Route: 058
     Dates: start: 20231027, end: 20231027

REACTIONS (6)
  - Vomiting [None]
  - Headache [None]
  - Dehydration [None]
  - Nausea [None]
  - Treatment noncompliance [None]
  - Intentional overdose [None]

NARRATIVE: CASE EVENT DATE: 20231027
